FAERS Safety Report 4726695-0 (Version None)
Quarter: 2005Q3

REPORT INFORMATION
  Report Type: 
  Country: None (occurrence: None)
  Receive Date: 20050725
  Receipt Date: 20050307
  Transmission Date: 20060218
  Serious: No
  Sender: FDA-Public Use
  Company Number: USA040259067

PATIENT
  Age: 27 Year
  Sex: Female
  Weight: 54 kg

DRUGS (6)
  1. STRATTERA [Suspect]
     Indication: BIPOLAR DISORDER
     Dosage: 120 MG/1 DAY
     Dates: start: 20020101
  2. TRAZADONE (TRAZODONE) [Concomitant]
  3. GABITRIL [Concomitant]
  4. LAMICTAL [Concomitant]
  5. PRILOSEC [Concomitant]
  6. PRENATAL VITAMINS [Concomitant]

REACTIONS (3)
  - NERVE COMPRESSION [None]
  - PRESCRIBED OVERDOSE [None]
  - SUPPRESSED LACTATION [None]
